FAERS Safety Report 9196500 (Version 1)
Quarter: 2013Q1

REPORT INFORMATION
  Report Type: Spontaneous
  Country: US (occurrence: US)
  Receive Date: 20130328
  Receipt Date: 20130328
  Transmission Date: 20140127
  Serious: No
  Sender: FDA-Public Use
  Company Number: US-PFIZER INC-2013100581

PATIENT
  Age: 50 Year
  Sex: Female
  Weight: 52.15 kg

DRUGS (3)
  1. CHANTIX [Suspect]
     Indication: SMOKING CESSATION THERAPY
     Dosage: 0.5 MG, UNK
  2. CYMBALTA [Concomitant]
     Indication: PAIN IN EXTREMITY
     Dosage: 60 MG, DAILY
  3. TRAMADOL HYDROCHLORIDE [Concomitant]
     Indication: PAIN IN EXTREMITY
     Dosage: 50 MG, DAILY

REACTIONS (1)
  - Nightmare [Recovered/Resolved]
